FAERS Safety Report 5418063-3 (Version None)
Quarter: 2007Q3

REPORT INFORMATION
  Report Type: 
  Country: None (occurrence: None)
  Receive Date: 20070817
  Receipt Date: 20070806
  Transmission Date: 20080115
  Serious: Yes (Other)
  Sender: FDA-Public Use
  Company Number: US-AVENTIS-200715702US

PATIENT

DRUGS (1)
  1. GLYBURIDE [Suspect]
     Dosage: DOSE: UNK

REACTIONS (2)
  - DRUG EXPOSURE DURING PREGNANCY [None]
  - MACROSOMIA [None]
